FAERS Safety Report 20021143 (Version 10)
Quarter: 2023Q1

REPORT INFORMATION
  Report Type: Report from Study
  Country: DE (occurrence: DE)
  Receive Date: 20211101
  Receipt Date: 20230321
  Transmission Date: 20230417
  Serious: Yes (Hospitalization)
  Sender: FDA-Public Use
  Company Number: DE-002147023-NVSC2020DE149578

PATIENT
  Sex: Female
  Weight: 51.1 kg

DRUGS (3)
  1. LETROZOLE [Suspect]
     Active Substance: LETROZOLE
     Indication: Breast cancer metastatic
     Dosage: 2.5 MILLIGRAM, QD
     Route: 048
     Dates: start: 20190327
  2. KISQALI [Suspect]
     Active Substance: RIBOCICLIB
     Indication: Breast cancer metastatic
     Dosage: 600 MG, QD (SCHEMA 21 DAY INTAKE, 7 DAY PAUSE)
     Route: 048
     Dates: start: 20190327, end: 20210621
  3. KISQALI [Suspect]
     Active Substance: RIBOCICLIB
     Dosage: 400 MG, QD (SCHEMA 21 DAY INTAKE, 7 DAY PAUSE)
     Route: 048
     Dates: start: 20210701

REACTIONS (13)
  - Spinal pain [Recovering/Resolving]
  - Erysipelas [Recovered/Resolved]
  - Restless legs syndrome [Recovered/Resolved]
  - General physical health deterioration [Recovered/Resolved]
  - Vena cava thrombosis [Recovered/Resolved]
  - Abdominal pain lower [Recovered/Resolved]
  - Vomiting [Recovered/Resolved]
  - Diarrhoea [Recovered/Resolved]
  - Nausea [Recovered/Resolved]
  - Depressed mood [Recovered/Resolved]
  - Pyrexia [Recovering/Resolving]
  - Superficial vein thrombosis [Recovered/Resolved]
  - Palpitations [Recovering/Resolving]

NARRATIVE: CASE EVENT DATE: 20200514
